FAERS Safety Report 15220885 (Version 1)
Quarter: 2018Q3

REPORT INFORMATION
  Report Type: Spontaneous
  Country: US (occurrence: US)
  Receive Date: 20180731
  Receipt Date: 20180731
  Transmission Date: 20181010
  Serious: No
  Sender: FDA-Public Use
  Company Number: US-AKRON, INC.-2052998

PATIENT
  Sex: Female

DRUGS (1)
  1. KETOTIFEN [Suspect]
     Active Substance: KETOTIFEN
     Route: 047

REACTIONS (2)
  - Erythema of eyelid [Recovered/Resolved]
  - Ocular hyperaemia [Recovered/Resolved]
